FAERS Safety Report 9329623 (Version 1)
Quarter: 2013Q2

REPORT INFORMATION
  Report Type: Spontaneous
  Country: US (occurrence: US)
  Receive Date: 20130604
  Receipt Date: 20130604
  Transmission Date: 20140414
  Serious: No
  Sender: FDA-Public Use
  Company Number: US-SANOFI-AVENTIS-2012SA089127

PATIENT
  Age: 63 Year
  Sex: Male

DRUGS (4)
  1. LANTUS [Suspect]
     Indication: TYPE 2 DIABETES MELLITUS
     Dosage: DOSAGE: 35 UNITS EACH MORNING AND 30 UNITS EACH EVENING AND SOMETIMES 25 UNITS IN THE EVENINGS.
     Route: 058
     Dates: start: 2011
  2. HUMALIN [Suspect]
     Dosage: DOSE:15 UNIT(S)
     Route: 065
  3. DEMADEX [Concomitant]
  4. TAMSULOSIN HYDROCHLORIDE [Concomitant]

REACTIONS (2)
  - Oedema peripheral [Not Recovered/Not Resolved]
  - Blood glucose decreased [Unknown]
